FAERS Safety Report 13180414 (Version 4)
Quarter: 2017Q2

REPORT INFORMATION
  Report Type: Spontaneous
  Country: DE (occurrence: DE)
  Receive Date: 20170202
  Receipt Date: 20170407
  Transmission Date: 20170830
  Serious: Yes (Other)
  Sender: FDA-Public Use
  Company Number: DE-SA-2017SA013933

PATIENT
  Age: 57 Year
  Sex: Female

DRUGS (1)
  1. LEMTRADA [Suspect]
     Active Substance: ALEMTUZUMAB
     Indication: RELAPSING-REMITTING MULTIPLE SCLEROSIS
     Route: 041
     Dates: start: 20161122, end: 20161126

REACTIONS (15)
  - Hyperkalaemia [Unknown]
  - Alanine aminotransferase increased [Recovered/Resolved]
  - Drug ineffective [Unknown]
  - C-reactive protein increased [Recovered/Resolved]
  - Monocyte count increased [Recovered/Resolved]
  - Lymphocyte count decreased [Not Recovered/Not Resolved]
  - Gamma-glutamyltransferase increased [Recovered/Resolved]
  - Basophil count decreased [Recovered/Resolved]
  - Lymphocyte count decreased [Recovered/Resolved]
  - Eosinophil count decreased [Recovered/Resolved]
  - Red cell distribution width increased [Recovered/Resolved]
  - Neutrophil count increased [Not Recovered/Not Resolved]
  - Monocyte count decreased [Recovered/Resolved]
  - Neutrophil count increased [Not Recovered/Not Resolved]
  - Aspartate aminotransferase increased [Recovered/Resolved]

NARRATIVE: CASE EVENT DATE: 2016
